FAERS Safety Report 10073450 (Version 2)
Quarter: 2014Q2

REPORT INFORMATION
  Report Type: Report from Study
  Country: CA (occurrence: CA)
  Receive Date: 20140411
  Receipt Date: 20140512
  Transmission Date: 20141212
  Serious: Yes (Hospitalization, Other)
  Sender: FDA-Public Use
  Company Number: CA-ABBVIE-14P-028-1221777-00

PATIENT
  Sex: Female

DRUGS (4)
  1. HUMIRA [Suspect]
     Indication: CROHN^S DISEASE
     Route: 058
     Dates: start: 20060720
  2. HUMIRA [Suspect]
     Route: 058
  3. HUMIRA [Suspect]
     Dosage: MISSED ONE DOSE
  4. HUMIRA [Suspect]
     Route: 058

REACTIONS (3)
  - Anal fissure [Unknown]
  - Weight increased [Not Recovered/Not Resolved]
  - Crohn^s disease [Recovered/Resolved]
